FAERS Safety Report 19911697 (Version 1)
Quarter: 2021Q4

REPORT INFORMATION
  Report Type: Spontaneous
  Country: US (occurrence: US)
  Receive Date: 20211001
  Receipt Date: 20211001
  Transmission Date: 20220303
  Serious: No
  Sender: FDA-Public Use
  Company Number: None

PATIENT
  Sex: Female

DRUGS (8)
  1. IBRANCE [Suspect]
     Active Substance: PALBOCICLIB
     Indication: Breast cancer female
     Dosage: 1OOMG QD 21 DAYS ON 7 OFF ORALLY
     Route: 048
     Dates: start: 20200924
  2. ASPIRIN [Concomitant]
     Active Substance: ASPIRIN
  3. COLLAGEN [Concomitant]
     Active Substance: COLLAGEN
  4. IRON [Concomitant]
     Active Substance: IRON
  5. VITAMINS [Concomitant]
     Active Substance: VITAMINS
  6. OXYCODONE [Concomitant]
     Active Substance: OXYCODONE
  7. IBUPROFEN [Concomitant]
     Active Substance: IBUPROFEN
  8. TRAMADOL [Concomitant]
     Active Substance: TRAMADOL

REACTIONS (8)
  - Epistaxis [None]
  - Vomiting [None]
  - Arthralgia [None]
  - Stomatitis [None]
  - Fatigue [None]
  - Diarrhoea [None]
  - Ankle fracture [None]
  - Pain [None]
